FAERS Safety Report 7862624-9 (Version None)
Quarter: 2011Q4

REPORT INFORMATION
  Report Type: 
  Country: None (occurrence: None)
  Receive Date: 20111025
  Receipt Date: 20111017
  Transmission Date: 20120403
  Serious: Yes (Hospitalization, Other)
  Sender: FDA-Public Use
  Company Number: 2011SP019411

PATIENT
  Age: 34 Year
  Sex: Female
  Weight: 89.8122 kg

DRUGS (13)
  1. EFFEXOR [Concomitant]
  2. TOPAMAX [Concomitant]
  3. NUVARING [Suspect]
     Indication: MENSTRUAL DISORDER
     Dates: start: 20050801
  4. NUVARING [Suspect]
     Indication: CONTRACEPTION
     Dates: start: 20050801
  5. NUVARING [Suspect]
     Indication: MENORRHAGIA
     Dates: start: 20050801
  6. NUVARING [Suspect]
     Indication: ENDOMETRIOSIS
     Dates: start: 20050801
  7. ZYRTEC [Concomitant]
  8. TRICOR [Concomitant]
  9. NUVARING [Suspect]
     Indication: MENSTRUAL DISORDER
     Dates: start: 20090201, end: 20090515
  10. NUVARING [Suspect]
     Indication: ENDOMETRIOSIS
     Dates: start: 20090201, end: 20090515
  11. NUVARING [Suspect]
     Indication: CONTRACEPTION
     Dates: start: 20090201, end: 20090515
  12. NUVARING [Suspect]
     Indication: MENORRHAGIA
     Dates: start: 20090201, end: 20090515
  13. ZOMIG [Concomitant]

REACTIONS (30)
  - SINUSITIS [None]
  - CYST RUPTURE [None]
  - ARTHRALGIA [None]
  - ACUTE SINUSITIS [None]
  - CEREBROVASCULAR ACCIDENT [None]
  - CAROTID ARTERY ANEURYSM [None]
  - LOSS OF EMPLOYMENT [None]
  - CERVIX CARCINOMA [None]
  - LUNG NEOPLASM MALIGNANT [None]
  - HEART RATE IRREGULAR [None]
  - MUSCLE SPASMS [None]
  - TONSILLAR HYPERTROPHY [None]
  - MENORRHAGIA [None]
  - INSOMNIA [None]
  - ENDOMETRIOSIS [None]
  - INFLUENZA [None]
  - HYPOAESTHESIA [None]
  - DEMENTIA ALZHEIMER'S TYPE [None]
  - ASTHENIA [None]
  - DEPRESSION [None]
  - EPILEPSY [None]
  - ANGINA PECTORIS [None]
  - RECTAL CANCER [None]
  - PULMONARY EMBOLISM [None]
  - RENAL DISORDER [None]
  - RHINITIS ALLERGIC [None]
  - HYPERLIPIDAEMIA [None]
  - NIGHTMARE [None]
  - ADENOMYOSIS [None]
  - CHEST DISCOMFORT [None]
